FAERS Safety Report 8391391-8 (Version None)
Quarter: 2012Q2

REPORT INFORMATION
  Report Type: 
  Country: None (occurrence: None)
  Receive Date: 20120529
  Receipt Date: 20120514
  Transmission Date: 20120825
  Serious: No
  Sender: FDA-Public Use
  Company Number: US-JNJFOC-20120514594

PATIENT
  Sex: Female
  Weight: 68.04 kg

DRUGS (5)
  1. DURAGESIC-100 [Suspect]
     Indication: MUSCLE SPASMS
     Route: 062
     Dates: start: 20120501
  2. FENTANYL CITRATE [Suspect]
     Indication: MUSCLE SPASMS
     Route: 062
     Dates: start: 20110501, end: 20120430
  3. HUMAN GROWTH HORMONE [Concomitant]
     Indication: CRANIOCEREBRAL INJURY
     Route: 058
     Dates: start: 20050101
  4. MOTILIUM [Concomitant]
     Indication: GASTRIC STENOSIS
     Route: 048
     Dates: start: 20050101
  5. PROZAC [Concomitant]
     Indication: DEPRESSION
     Route: 048
     Dates: start: 20090101

REACTIONS (4)
  - APPLICATION SITE VESICLES [None]
  - INCORRECT DRUG ADMINISTRATION DURATION [None]
  - APPLICATION SITE PRURITUS [None]
  - DERMATITIS CONTACT [None]
